FAERS Safety Report 15555668 (Version 1)
Quarter: 2018Q4

REPORT INFORMATION
  Report Type: Spontaneous
  Country: ES (occurrence: ES)
  Receive Date: 20181026
  Receipt Date: 20181026
  Transmission Date: 20190205
  Serious: Yes (Hospitalization, Other)
  Sender: FDA-Public Use
  Company Number: PHHY2018ES137825

PATIENT
  Age: 88 Year
  Sex: Female

DRUGS (6)
  1. FUROSEMIDE. [Suspect]
     Active Substance: FUROSEMIDE
     Indication: CARDIAC FAILURE
     Dosage: 2 ?G/L, Q24H
     Route: 048
     Dates: start: 20180405
  2. FORMODUAL [Concomitant]
     Indication: ASTHMA
     Dosage: 2 ?G/L, Q12H
     Route: 055
     Dates: start: 20180516
  3. OXCARBAZEPINA [Concomitant]
     Active Substance: OXCARBAZEPINE
     Indication: TRIGEMINAL NEURALGIA
     Dosage: 1 FG, QD
     Route: 048
     Dates: start: 20131104
  4. ATROVENT [Concomitant]
     Active Substance: IPRATROPIUM BROMIDE
     Indication: CARDIAC FAILURE
     Dosage: 40 UG, Q6H
     Route: 055
     Dates: start: 20170322
  5. OMEPRAZOL [Concomitant]
     Active Substance: OMEPRAZOLE
     Indication: BREAST CANCER FEMALE
     Dosage: 1 ?G/L, UNK
     Route: 048
  6. DIAZEPAM. [Concomitant]
     Active Substance: DIAZEPAM
     Indication: ANXIETY
     Dosage: 1 ?G/L, Q12H
     Route: 048
     Dates: start: 20180410

REACTIONS (2)
  - Overdose [Recovered/Resolved]
  - Acute kidney injury [Recovered/Resolved]

NARRATIVE: CASE EVENT DATE: 20180618
